FAERS Safety Report 15558951 (Version 2)
Quarter: 2018Q4

REPORT INFORMATION
  Report Type: Spontaneous
  Country: ES (occurrence: ES)
  Receive Date: 20181029
  Receipt Date: 20181108
  Transmission Date: 20190205
  Serious: Yes (Other)
  Sender: FDA-Public Use
  Company Number: ES-REGENERON PHARMACEUTICALS, INC.-2018-42068

PATIENT

DRUGS (1)
  1. EYLEA [Suspect]
     Active Substance: AFLIBERCEPT
     Indication: PRODUCT USED FOR UNKNOWN INDICATION

REACTIONS (4)
  - Hemiparesis [Unknown]
  - Cerebral palsy [Unknown]
  - Ischaemic cerebral infarction [Unknown]
  - Foetal exposure timing unspecified [Unknown]

NARRATIVE: CASE EVENT DATE: 2013
